FAERS Safety Report 4840019-X (Version None)
Quarter: 2005Q4

REPORT INFORMATION
  Report Type: 
  Country: None (occurrence: None)
  Receive Date: 20051125
  Receipt Date: 20051111
  Transmission Date: 20060501
  Serious: Yes (Hospitalization)
  Sender: FDA-Public Use
  Company Number: 2005US001649

PATIENT
  Age: 9 Year
  Sex: Male

DRUGS (4)
  1. AMBISOME [Suspect]
     Indication: LUNG DISORDER
     Dosage: 100.00 MG, UID/QD, IV NOS
     Route: 042
     Dates: start: 20051011, end: 20051021
  2. TAZOCILLINE (PIPERACILLIN SODIUM, TAZOBACTAM SODIUM) [Concomitant]
  3. TIBERAL (ORNIDAZOLE) [Concomitant]
  4. TAGROCID (TEICOPLANIN) [Concomitant]

REACTIONS (5)
  - BRADYPNOEA [None]
  - CONVULSION [None]
  - DEPRESSED LEVEL OF CONSCIOUSNESS [None]
  - LEUKOENCEPHALOPATHY [None]
  - NYSTAGMUS [None]
